FAERS Safety Report 15570774 (Version 2)
Quarter: 2018Q4

REPORT INFORMATION
  Report Type: Spontaneous
  Country: IT (occurrence: IT)
  Receive Date: 20181031
  Receipt Date: 20181115
  Transmission Date: 20190205
  Serious: Yes (Other)
  Sender: FDA-Public Use
  Company Number: IT-BAYER-2018-199324

PATIENT
  Age: 70 Year
  Sex: Male

DRUGS (2)
  1. CARDIOASPIRIN 100 MG [Suspect]
     Active Substance: ASPIRIN
     Indication: PERIPHERAL ARTERIAL OCCLUSIVE DISEASE
     Dosage: UNK
  2. MESALAMINE. [Concomitant]
     Active Substance: MESALAMINE
     Indication: DRUG THERAPY
     Dosage: UNK

REACTIONS (2)
  - Diverticulitis intestinal haemorrhagic [None]
  - Haemoglobin decreased [None]

NARRATIVE: CASE EVENT DATE: 201809
